FAERS Safety Report 7726812-4 (Version None)
Quarter: 2011Q3

REPORT INFORMATION
  Report Type: 
  Country: None (occurrence: None)
  Receive Date: 20110902
  Receipt Date: 20110829
  Transmission Date: 20111222
  Serious: Yes (Hospitalization)
  Sender: FDA-Public Use
  Company Number: JP-GLAXOSMITHKLINE-B0740480A

PATIENT
  Sex: Female

DRUGS (4)
  1. DEPAKENE [Concomitant]
     Indication: EPILEPSY
     Dosage: 600MG PER DAY
     Route: 048
  2. LAMICTAL [Suspect]
     Indication: EPILEPSY
     Route: 048
     Dates: end: 20110803
  3. TOPIRAMATE [Concomitant]
     Indication: EPILEPSY
     Dosage: 400MG PER DAY
     Route: 048
  4. ZONISAMIDE [Concomitant]
     Indication: EPILEPSY
     Dosage: 200MG PER DAY
     Route: 048

REACTIONS (12)
  - STEVENS-JOHNSON SYNDROME [None]
  - RASH [None]
  - ASPARTATE AMINOTRANSFERASE INCREASED [None]
  - C-REACTIVE PROTEIN INCREASED [None]
  - EOSINOPHIL PERCENTAGE INCREASED [None]
  - ALANINE AMINOTRANSFERASE INCREASED [None]
  - HAEMATOCRIT INCREASED [None]
  - BLOOD LACTATE DEHYDROGENASE INCREASED [None]
  - PLATELET COUNT DECREASED [None]
  - OCULOMUCOCUTANEOUS SYNDROME [None]
  - ORAL PAIN [None]
  - BAND NEUTROPHIL PERCENTAGE INCREASED [None]
